FAERS Safety Report 9704374 (Version 4)
Quarter: 2013Q4

REPORT INFORMATION
  Report Type: Report from Study
  Country: US (occurrence: US)
  Receive Date: 20131122
  Receipt Date: 20131226
  Transmission Date: 20140711
  Serious: Yes (Hospitalization, Disabling, Other)
  Sender: FDA-Public Use
  Company Number: US-B.I. PHARMACEUTICALS,INC./RIDGEFIELD-2013-BI-35376BI

PATIENT
  Age: 49 Year
  Sex: Female
  Weight: 49.9 kg

DRUGS (24)
  1. GILOTRIF [Suspect]
     Indication: LUNG NEOPLASM MALIGNANT
     Dosage: 40 MG
     Route: 048
  2. GILOTRIF [Suspect]
     Indication: NON-SMALL CELL LUNG CANCER
     Dosage: 30 MG
     Route: 048
     Dates: start: 20131017
  3. ZOFRAN [Concomitant]
  4. VD [Concomitant]
  5. CALCIUM [Concomitant]
  6. FOLIC ACID [Concomitant]
  7. IBUPROPHEN [Concomitant]
  8. LEXAPRO [Concomitant]
  9. RAGLAN [Concomitant]
  10. OXYCODONE-ACETAMINOPHEN 10-325 [Concomitant]
  11. LOMOTIL [Concomitant]
  12. LACTULOSE [Concomitant]
     Dosage: 10MG/15ML
  13. CALCIUM CARBONATE 1.25GM [Concomitant]
  14. METOCLOPRAMIDE [Concomitant]
  15. LORAZEPAM [Concomitant]
  16. ONDANSETRON HCL [Concomitant]
  17. OMEPRAZOLE DR [Concomitant]
  18. HYDROCORTISONE [Concomitant]
     Dosage: 0.5%
  19. SENNA-S [Concomitant]
  20. VITAMIN D [Concomitant]
     Dosage: UNITS
  21. LOPERAMIDE [Concomitant]
  22. EUCERIN CREME [Concomitant]
  23. LUBIDERM LOTION [Concomitant]
  24. CHEMOTHERAPY [Concomitant]

REACTIONS (19)
  - Dehydration [Recovered/Resolved]
  - Diarrhoea [Unknown]
  - Fatigue [Not Recovered/Not Resolved]
  - Haemorrhage [Recovered/Resolved]
  - Investigation [Unknown]
  - Glossodynia [Unknown]
  - Dysgeusia [Unknown]
  - Paronychia [Not Recovered/Not Resolved]
  - Skin fissures [Not Recovered/Not Resolved]
  - Reaction to drug excipients [Not Recovered/Not Resolved]
  - Decreased appetite [Recovered/Resolved]
  - Fatigue [Not Recovered/Not Resolved]
  - Radiotherapy to brain [Not Recovered/Not Resolved]
  - Pain in extremity [Not Recovered/Not Resolved]
  - Dyspepsia [Not Recovered/Not Resolved]
  - Stomatitis [Not Recovered/Not Resolved]
  - Dry mouth [Unknown]
  - Diarrhoea [Unknown]
  - Fatigue [Not Recovered/Not Resolved]
